FAERS Safety Report 25184941 (Version 1)
Quarter: 2025Q2

REPORT INFORMATION
  Report Type: Report from Study
  Country: DE (occurrence: DE)
  Receive Date: 20250410
  Receipt Date: 20250410
  Transmission Date: 20250716
  Serious: Yes (Hospitalization)
  Sender: ALIMERA
  Company Number: DE-ALIMERA SCIENCES LIMITED-DE-IL-2019-004517

PATIENT
  Sex: Male

DRUGS (4)
  1. ILUVIEN [Suspect]
     Active Substance: FLUOCINOLONE ACETONIDE
     Indication: Diabetic retinal oedema
     Dosage: 0.25 ?G, QD - RIGHT EYE
     Route: 031
     Dates: start: 20170120
  2. ILUVIEN [Suspect]
     Active Substance: FLUOCINOLONE ACETONIDE
     Dosage: 0.25 ?G, QD - RIGHT EYE
     Route: 031
     Dates: start: 20181130
  3. METFORMIN [Concomitant]
     Active Substance: METFORMIN HYDROCHLORIDE
     Indication: Type 2 diabetes mellitus
     Dates: start: 2014
  4. RAMIPRIL [Concomitant]
     Active Substance: RAMIPRIL
     Indication: Hypertension
     Dates: start: 2013

REACTIONS (3)
  - Condition aggravated [Recovered/Resolved]
  - Glaucoma [Recovered/Resolved]
  - Trabeculectomy [Recovered/Resolved]

NARRATIVE: CASE EVENT DATE: 20171114
